FAERS Safety Report 10430511 (Version 1)
Quarter: 2014Q3

REPORT INFORMATION
  Report Type: Spontaneous
  Country: BR (occurrence: BR)
  Receive Date: 20140904
  Receipt Date: 20140904
  Transmission Date: 20150326
  Serious: Yes (Death, Hospitalization)
  Sender: FDA-Public Use
  Company Number: PHHY2014BR111885

PATIENT
  Age: 63 Year
  Sex: Male

DRUGS (2)
  1. FORASEQ [Suspect]
     Active Substance: BUDESONIDE\FORMOTEROL FUMARATE
     Indication: BRONCHIAL OBSTRUCTION
     Dosage: UNK UKN, QD
     Route: 055
  2. ONBREZ [Suspect]
     Active Substance: INDACATEROL
     Indication: BRONCHIAL OBSTRUCTION
     Dosage: UNK UKN, QD
     Route: 055

REACTIONS (4)
  - Pneumonia [Fatal]
  - Infection [Fatal]
  - Renal failure acute [Fatal]
  - Malaise [Fatal]
